FAERS Safety Report 10066637 (Version 2)
Quarter: 2014Q2

REPORT INFORMATION
  Report Type: Spontaneous
  Country: US (occurrence: US)
  Receive Date: 20140408
  Receipt Date: 20140408
  Transmission Date: 20141212
  Serious: Yes (Death)
  Sender: FDA-Public Use
  Company Number: US-CUBIST PHARMACEUTICAL, INC.-2005S1000212

PATIENT
  Sex: 0

DRUGS (3)
  1. CUBICIN [Suspect]
     Indication: DEVICE RELATED INFECTION
     Dosage: 4 MG/KG, QD
     Route: 042
  2. CUBICIN [Suspect]
     Indication: STAPHYLOCOCCAL INFECTION
  3. CUBICIN [Suspect]
     Indication: OFF LABEL USE

REACTIONS (1)
  - Death [Fatal]
